FAERS Safety Report 20744807 (Version 1)
Quarter: 2022Q2

REPORT INFORMATION
  Report Type: Spontaneous
  Country: GB (occurrence: GB)
  Receive Date: 20220425
  Receipt Date: 20220425
  Transmission Date: 20220721
  Serious: Yes (Death, Hospitalization, Other)
  Sender: FDA-Public Use
  Company Number: None

PATIENT
  Age: 70 Year
  Sex: Male

DRUGS (32)
  1. CLINDAMYCIN PHOSPHATE [Suspect]
     Active Substance: CLINDAMYCIN PHOSPHATE
     Dosage: 900 MG, 3X/DAY (600MG/4ML)
     Route: 042
     Dates: start: 20220328, end: 20220401
  2. PREDNISOLONE [Suspect]
     Active Substance: PREDNISOLONE
     Indication: Hyperthyroidism
     Dosage: 30 MG, 1X/DAY
     Dates: start: 20220208, end: 20220215
  3. PREDNISOLONE [Suspect]
     Active Substance: PREDNISOLONE
     Dosage: 40 MG, 1X/DAY
     Dates: start: 20220125, end: 20220208
  4. PREDNISOLONE [Suspect]
     Active Substance: PREDNISOLONE
     Dosage: 25 MG, 1X/DAY
     Dates: start: 20220215, end: 20220222
  5. PREDNISOLONE [Suspect]
     Active Substance: PREDNISOLONE
     Dosage: 20 MG, 1X/DAY
     Dates: start: 20220330, end: 20220410
  6. PREDNISOLONE [Suspect]
     Active Substance: PREDNISOLONE
     Dosage: 40 MG, 2X/DAY
     Dates: start: 20220322, end: 20220325
  7. PREDNISOLONE [Suspect]
     Active Substance: PREDNISOLONE
     Dosage: 15 MG, 1X/DAY
     Dates: start: 20220301, end: 20220308
  8. PREDNISOLONE [Suspect]
     Active Substance: PREDNISOLONE
     Dosage: 20 MG, 1X/DAY
     Dates: start: 20220222, end: 20220301
  9. PREDNISOLONE [Suspect]
     Active Substance: PREDNISOLONE
     Dosage: 5 MG, 1X/DAY
     Dates: start: 20220315, end: 20220322
  10. PREDNISOLONE [Suspect]
     Active Substance: PREDNISOLONE
     Dosage: 10 MG, 1X/DAY
     Dates: start: 20220308, end: 20220315
  11. PRIMAQUINE [Suspect]
     Active Substance: PRIMAQUINE
     Indication: Pneumocystis jirovecii pneumonia
     Dosage: 30 MG, 1X/DAY (TAKEN AT NIGHT)
     Route: 048
     Dates: start: 20220328, end: 20220401
  12. ANIDULAFUNGIN [Concomitant]
     Active Substance: ANIDULAFUNGIN
     Indication: Sepsis
     Dosage: 100 MG, 1X/DAY
     Route: 041
     Dates: start: 20220328, end: 20220408
  13. APIXABAN [Concomitant]
     Active Substance: APIXABAN
     Dosage: 5 MG, 2X/DAY
     Route: 048
     Dates: start: 20220406
  14. ASPIRIN [Concomitant]
     Active Substance: ASPIRIN
     Dosage: 75 MG, 1X/DAY
     Route: 048
  15. ATORVASTATIN [Concomitant]
     Active Substance: ATORVASTATIN
     Dosage: 40 MG, 1X/DAY (TAKEN AT NIGHT)
     Route: 048
  16. ATOVAQUONE [Concomitant]
     Active Substance: ATOVAQUONE
     Indication: Pneumocystis jirovecii pneumonia
     Dosage: 750 MG, 2X/DAY (750MG/5ML)
     Route: 048
     Dates: start: 20220401, end: 20220408
  17. ATRACURIUM [Concomitant]
     Active Substance: ATRACURIUM
     Dosage: 250MG/25ML TITRATED TO REQUIREMENTS
     Route: 041
  18. ALFENTANIL [Concomitant]
     Active Substance: ALFENTANIL
     Dosage: UNK (25MG/50ML TITRATED TO REQUIREMENTS)
     Route: 041
     Dates: start: 20220328, end: 20220403
  19. CHLORHEXIDINE [Concomitant]
     Active Substance: CHLORHEXIDINE
     Dosage: 1 DF, 2X/DAY
     Route: 061
  20. COTRIMOXAZOLE [Concomitant]
     Active Substance: SULFAMETHOXAZOLE\TRIMETHOPRIM
     Indication: Pneumocystis jirovecii pneumonia
     Dosage: 2880 MG, 4X/DAY
     Route: 041
     Dates: start: 20220325, end: 20220328
  21. CARBIMAZOLE [Concomitant]
     Active Substance: CARBIMAZOLE
     Dosage: 10 MG, (HAD BEEN ON 20MG TWICE DAILY. REDUCED TO STOP WITH STEROIDS )
     Route: 048
     Dates: start: 20220125, end: 20220311
  22. CHLORHEXIDINE GLUCONATE [Concomitant]
     Active Substance: CHLORHEXIDINE GLUCONATE
     Dosage: 20 ML, 4X/DAY
     Route: 061
  23. DRONEDARONE [Concomitant]
     Active Substance: DRONEDARONE
     Dosage: 400 MG, 2X/DAY
     Route: 048
  24. ENOXAPARIN SODIUM [Concomitant]
     Active Substance: ENOXAPARIN SODIUM
     Dosage: 40 MG, 1X/DAY (40MG/0.4ML)
     Route: 058
     Dates: start: 20220318, end: 20220405
  25. FOLIC ACID\IRON\MINERALS\VITAMINS [Concomitant]
     Active Substance: FOLIC ACID\IRON\MINERALS\VITAMINS
     Dosage: 1 DF, 1X/DAY
     Route: 048
  26. MEROPENEM [Concomitant]
     Active Substance: MEROPENEM
     Dosage: 1 G, 3X/DAY
     Route: 040
     Dates: start: 20220327, end: 20220330
  27. NEBIVOLOL [Concomitant]
     Active Substance: NEBIVOLOL
     Dosage: 1.25 MG, 1X/DAY
     Route: 048
  28. NOREPINEPHRINE [Concomitant]
     Active Substance: NOREPINEPHRINE
     Dosage: UNK (4MG/50ML  TITRATED TO REQUIREMENTS)
     Route: 041
     Dates: start: 20220328, end: 20220403
  29. OMEPRAZOLE [Concomitant]
     Active Substance: OMEPRAZOLE
     Dosage: 20 MG, 1X/DAY
     Route: 048
  30. PRONTODERM [POLIHEXANIDE] [Concomitant]
     Dosage: 1 DF, 3X/DAY (STANDARD ON HIGH CARE AREAS )
     Route: 061
     Dates: start: 20220318
  31. PROPYLTHIOURACIL [Concomitant]
     Active Substance: PROPYLTHIOURACIL
     Dosage: 100 MG, 2X/DAY
     Route: 048
     Dates: start: 20220329
  32. PROPYLTHIOURACIL [Concomitant]
     Active Substance: PROPYLTHIOURACIL
     Dosage: 150 MG, 2X/DAY
     Route: 048
     Dates: start: 20220318, end: 20220329

REACTIONS (2)
  - Immunosuppression [Fatal]
  - Methaemoglobinaemia [Fatal]

NARRATIVE: CASE EVENT DATE: 20220329
